FAERS Safety Report 7556841-5 (Version None)
Quarter: 2011Q2

REPORT INFORMATION
  Report Type: 
  Country: None (occurrence: None)
  Receive Date: 20110616
  Receipt Date: 20110616
  Transmission Date: 20111010
  Serious: Yes (Life-Threatening, Hospitalization, Disabling)
  Sender: FDA-Public Use
  Company Number: None

PATIENT
  Age: 57 Year
  Sex: Male
  Weight: 121.564 kg

DRUGS (10)
  1. MULTI-VITAMIN [Concomitant]
  2. ALPHA LIPOIC ACID [Concomitant]
  3. LOVAZA [Concomitant]
  4. MACUGEN [Suspect]
     Indication: DIABETIC RETINAL OEDEMA
     Dosage: 0.3MG / Q6W / 046
     Dates: start: 20101020
  5. NOVOLOG [Concomitant]
  6. LEVIMIR [Concomitant]
  7. EYE VISION VITAMIN [Concomitant]
  8. VIT D [Concomitant]
  9. NOVOLOG FLEX INJ PEN [Concomitant]
  10. MACUGEN [Suspect]
     Indication: DIABETIC RETINAL OEDEMA
     Dosage: 0.3MG / Q6W / 046
     Dates: start: 20101202

REACTIONS (4)
  - CELLULITIS [None]
  - MUSCLE INJURY [None]
  - NECROTISING FASCIITIS [None]
  - ABSCESS LIMB [None]
